FAERS Safety Report 5575494-9 (Version None)
Quarter: 2007Q4

REPORT INFORMATION
  Report Type: 
  Country: None (occurrence: None)
  Receive Date: 20071226
  Receipt Date: 20071211
  Transmission Date: 20080405
  Serious: Yes (Other)
  Sender: FDA-Public Use
  Company Number: 021891

PATIENT
  Age: 67 Year
  Sex: Female
  Weight: 75 kg

DRUGS (12)
  1. LITHIUM CARBONATE [Suspect]
     Indication: BIPOLAR DISORDER
     Dosage: 300 MG, BID,
  2. CELECOXIB [Concomitant]
  3. ESTRADIOL [Concomitant]
  4. AMITRIPTYLINE HCL [Concomitant]
  5. RABEPRAZOLE SODIUM [Concomitant]
  6. VERAPAMIL EXTENDED RELEASE (VERAPAMIL) [Concomitant]
  7. ATORVASTATIN CALCIUM [Concomitant]
  8. LEVOTHYROXINE SODIUM [Concomitant]
  9. ASCORBIC ACID [Concomitant]
  10. VITAMIN E [Concomitant]
  11. LEUCOVORIN CALCIUM [Concomitant]
  12. VITAMIN B12 [Concomitant]

REACTIONS (8)
  - BLOOD MAGNESIUM INCREASED [None]
  - HYPERCALCAEMIA [None]
  - HYPERPARATHYROIDISM [None]
  - HYPERTENSION [None]
  - OSTEOARTHRITIS [None]
  - OSTEOPOROSIS [None]
  - RENAL FAILURE CHRONIC [None]
  - URINARY TRACT INFECTION [None]
